FAERS Safety Report 9280777 (Version 1)
Quarter: 2013Q2

REPORT INFORMATION
  Report Type: Spontaneous
  Country: US (occurrence: US)
  Receive Date: 20130509
  Receipt Date: 20130509
  Transmission Date: 20140414
  Serious: Yes (Other)
  Sender: FDA-Public Use
  Company Number: US-PFIZER INC-2013141052

PATIENT
  Age: 53 Year
  Sex: Male
  Weight: 89.34 kg

DRUGS (13)
  1. NEURONTIN [Suspect]
     Indication: CONVULSION PROPHYLAXIS
     Dosage: 4800 MG DAILY
     Dates: start: 1998
  2. NEURONTIN [Suspect]
     Indication: BURNING SENSATION
     Dosage: 600 MG, 4X/DAY
     Dates: start: 2000
  3. PREVACID [Suspect]
     Indication: DYSPEPSIA
     Dosage: 30 MG, 2X/DAY
     Dates: start: 1998
  4. ALPRAZOLAM [Suspect]
     Indication: CARDIOVASCULAR EVENT PROPHYLAXIS
     Dosage: 1 MG, 4X/DAY
     Dates: start: 2012, end: 2012
  5. ALPRAZOLAM [Suspect]
     Dosage: 1 MG, 2X/DAY
     Dates: start: 2012
  6. LISINOPRIL [Concomitant]
     Dosage: 20 MG, 1X/DAY
     Route: 048
  7. NITROGLYCERIN [Concomitant]
     Indication: CHEST PAIN
     Dosage: UNK
     Route: 048
  8. ISOSORBIDE MONONITRATE [Concomitant]
     Dosage: 30MG DAILY
  9. METOPROLOL TARTRATE [Concomitant]
     Dosage: 30 MG DAILY
  10. CLOPIDOGREL BISULFATE [Concomitant]
     Dosage: 75 MG DAILY
  11. ASPIRIN ^BAYER^ [Concomitant]
     Dosage: 81 MG DAILY
  12. SIMVASTATIN [Concomitant]
     Dosage: UNK
  13. MORPHINE [Concomitant]
     Dosage: UNK

REACTIONS (5)
  - Myocardial infarction [Unknown]
  - Coronary artery occlusion [Unknown]
  - Chest pain [Unknown]
  - Intentional drug misuse [Unknown]
  - Drug ineffective [Unknown]
